FAERS Safety Report 23987347 (Version 3)
Quarter: 2024Q3

REPORT INFORMATION
  Report Type: Spontaneous
  Country: US (occurrence: US)
  Receive Date: 20240618
  Receipt Date: 20240829
  Transmission Date: 20241016
  Serious: Yes (Other)
  Sender: CALLIDITAS THERAPEUTICS
  Company Number: US-Calliditas-2024CAL01054

PATIENT
  Age: 47 Year
  Sex: Male
  Weight: 78 kg

DRUGS (3)
  1. TARPEYO [Suspect]
     Active Substance: BUDESONIDE
     Indication: IgA nephropathy
     Route: 048
     Dates: start: 20240517
  2. FUROSEMIDE [Concomitant]
     Active Substance: FUROSEMIDE
  3. SODIUM BICARBONATE [Concomitant]
     Active Substance: SODIUM BICARBONATE

REACTIONS (3)
  - Hypertension [Unknown]
  - Malignant urinary tract neoplasm [Recovered/Resolved]
  - Weight decreased [Unknown]
